FAERS Safety Report 19351275 (Version 2)
Quarter: 2022Q2

REPORT INFORMATION
  Report Type: Spontaneous
  Country: US (occurrence: US)
  Receive Date: 20210531
  Receipt Date: 20220419
  Transmission Date: 20220721
  Serious: No
  Sender: FDA-Public Use
  Company Number: US-PFIZER INC-2021229182

PATIENT
  Age: 60 Year
  Sex: Female
  Weight: 72.57 kg

DRUGS (2)
  1. ZOLOFT [Suspect]
     Active Substance: SERTRALINE HYDROCHLORIDE
     Indication: Anxiety
     Dosage: 50 MG, 2X/DAY
  2. ZOLOFT [Suspect]
     Active Substance: SERTRALINE HYDROCHLORIDE
     Indication: Obsessive-compulsive disorder
     Dosage: 50 MG, 2X/DAY

REACTIONS (5)
  - Vision blurred [Recovered/Resolved]
  - Diarrhoea [Recovered/Resolved]
  - Drug ineffective [Recovered/Resolved]
  - Condition aggravated [Unknown]
  - Product lot number issue [Unknown]

NARRATIVE: CASE EVENT DATE: 20210302
